FAERS Safety Report 10007398 (Version 1)
Quarter: 2014Q1

REPORT INFORMATION
  Report Type: Spontaneous
  Country: IT (occurrence: None)
  Receive Date: 20140311
  Receipt Date: 20140311
  Transmission Date: 20141002
  Serious: Yes (Other)
  Sender: FDA-Public Use
  Company Number: B0936005A

PATIENT
  Age: 81 Year
  Sex: Female

DRUGS (5)
  1. NADROPARINE CALCIUM [Suspect]
     Indication: PROPHYLAXIS
     Dates: start: 20120914
  2. FONDAPARINUX SODIUM [Suspect]
     Indication: THROMBOSIS
     Dates: start: 201209
  3. DIURETIC [Concomitant]
  4. CALCIUM CHANNEL BLOCKER [Concomitant]
  5. NSAID [Concomitant]

REACTIONS (3)
  - Thrombosis [None]
  - Off label use [None]
  - Heparin-induced thrombocytopenia [None]
